FAERS Safety Report 4423200-3 (Version None)
Quarter: 2004Q3

REPORT INFORMATION
  Report Type: 
  Country: None (occurrence: None)
  Receive Date: 20040809
  Receipt Date: 20040722
  Transmission Date: 20050211
  Serious: Yes (Life-Threatening, Hospitalization)
  Sender: FDA-Public Use
  Company Number: DE-SHR-03-010253

PATIENT
  Age: 21 Year
  Sex: Female
  Weight: 56 kg

DRUGS (1)
  1. BETAFERON [Suspect]
     Indication: MULTIPLE SCLEROSIS
     Dosage: 250 UG, EVERY 2D, SUBCUTANEOUS
     Route: 058
     Dates: start: 20021111, end: 20030623

REACTIONS (12)
  - BLOOD CREATINE PHOSPHOKINASE ABNORMAL [None]
  - BLOOD IMMUNOGLOBULIN M INCREASED [None]
  - CARDIOMYOPATHY [None]
  - CONDUCTION DISORDER [None]
  - DIZZINESS [None]
  - DYSPNOEA [None]
  - EJECTION FRACTION DECREASED [None]
  - LEFT VENTRICULAR FAILURE [None]
  - MYCOPLASMA SEROLOGY POSITIVE [None]
  - NAUSEA [None]
  - PULMONARY OEDEMA [None]
  - VENTRICULAR HYPOKINESIA [None]
